FAERS Safety Report 9964361 (Version 5)
Quarter: 2014Q2

REPORT INFORMATION
  Report Type: Spontaneous
  Country: FR (occurrence: FR)
  Receive Date: 20140305
  Receipt Date: 20140522
  Transmission Date: 20141212
  Serious: Yes (Hospitalization)
  Sender: FDA-Public Use
  Company Number: FR-PFIZER INC-2014062008

PATIENT
  Age: 85 Year
  Sex: Female

DRUGS (10)
  1. CORDARONE [Suspect]
     Dosage: UNK
     Route: 048
     Dates: start: 20140202, end: 20140210
  2. CITALOPRAM HBR [Suspect]
     Dosage: UNK
     Route: 048
     Dates: end: 20140210
  3. EUPANTOL [Suspect]
     Dosage: UNK
     Route: 048
     Dates: end: 20140210
  4. ZELITREX [Suspect]
     Indication: OPHTHALMIC HERPES ZOSTER
     Dosage: UNK
     Route: 048
     Dates: start: 20140121, end: 20140210
  5. ZELITREX [Suspect]
     Dosage: 1 DF, 2X/DAY
     Route: 048
     Dates: start: 20140214
  6. LOVENOX [Concomitant]
     Dosage: UNK
     Dates: start: 20140202, end: 20140203
  7. NOCTAMIDE [Concomitant]
     Dosage: UNK
  8. ZAMUDOL [Concomitant]
     Dosage: UNK
  9. FOSAVANCE [Concomitant]
     Dosage: UNK
  10. KARDEGIC [Concomitant]
     Dosage: UNK

REACTIONS (3)
  - Thrombocytopenia [Recovered/Resolved]
  - Purpura [Recovered/Resolved]
  - Rash maculo-papular [Recovered/Resolved]
